FAERS Safety Report 8067822-X (Version None)
Quarter: 2012Q1

REPORT INFORMATION
  Report Type: 
  Country: None (occurrence: None)
  Receive Date: 20120124
  Receipt Date: 20120117
  Transmission Date: 20120608
  Serious: Yes (Hospitalization)
  Sender: FDA-Public Use
  Company Number: BR-ASTRAZENECA-2012SE03827

PATIENT
  Age: 69 Year
  Sex: Female
  Weight: 82 kg

DRUGS (6)
  1. CRESTOR [Suspect]
     Indication: BLOOD CHOLESTEROL INCREASED
     Route: 048
     Dates: start: 20090801
  2. ATACAND [Suspect]
     Indication: HYPERTENSION
     Route: 048
     Dates: start: 20090801, end: 20100801
  3. ATACAND [Suspect]
     Route: 048
  4. METOPROLOL SUCCINATE [Suspect]
     Indication: HYPERTENSION
     Route: 048
     Dates: start: 20090801
  5. ATACAND HCT [Suspect]
     Indication: HYPERTENSION
     Dosage: 8/12.5 MG
     Route: 048
     Dates: start: 20100801, end: 20120101
  6. METFORMIN HYDROCHLORIDE [Concomitant]
     Indication: DIABETES MELLITUS
     Route: 048
     Dates: start: 20090801

REACTIONS (3)
  - GOUT [None]
  - BLOOD URIC ACID INCREASED [None]
  - ARRHYTHMIA [None]
